FAERS Safety Report 6465114-3 (Version None)
Quarter: 2009Q4

REPORT INFORMATION
  Report Type: 
  Country: None (occurrence: None)
  Receive Date: 20091201
  Receipt Date: 20091117
  Transmission Date: 20100525
  Serious: Yes (Hospitalization)
  Sender: FDA-Public Use
  Company Number: US-MYLANLABS-2009S1019869

PATIENT
  Age: 16 Year
  Sex: Male

DRUGS (29)
  1. RISPERIDONE [Suspect]
     Indication: TOURETTE'S DISORDER
     Route: 048
  2. TETRABENAZINE [Suspect]
     Indication: TOURETTE'S DISORDER
  3. HALOPERIDOL [Suspect]
     Indication: TOURETTE'S DISORDER
  4. PIMOZIDE [Interacting]
     Indication: TOURETTE'S DISORDER
     Dosage: STARTED IN 1MG INCREMENT TITRATIONS PER WEEK
  5. PIMOZIDE [Interacting]
     Dosage: 3 MG TOTAL DAILY
  6. FLUOXETINE [Interacting]
     Indication: ANXIETY
     Route: 048
  7. FLUOXETINE [Interacting]
     Route: 048
  8. FLUOXETINE [Interacting]
     Route: 048
  9. TOPIRAMATE [Suspect]
     Indication: WEIGHT CONTROL
  10. TOPIRAMATE [Suspect]
  11. BENZATROPINE [Concomitant]
     Indication: TOURETTE'S DISORDER
  12. ZIPRASIDONE HCL [Concomitant]
     Indication: TOURETTE'S DISORDER
     Dosage: UP TO 80MG TWICE DAILY FOR ABOUT A MONTH
  13. DIPHENHYDRAMINE HCL [Concomitant]
     Indication: TOURETTE'S DISORDER
  14. DIAZEPAM [Concomitant]
     Indication: TOURETTE'S DISORDER
  15. LORAZEPAM [Concomitant]
     Indication: TOURETTE'S DISORDER
     Route: 030
  16. MIDAZOLAM HCL [Concomitant]
     Indication: TOURETTE'S DISORDER
     Route: 042
  17. ZOLPIDEM [Concomitant]
  18. ZOLPIDEM [Concomitant]
  19. SODIUM DIOCTYL SULFOSUCCINATE [Concomitant]
     Route: 048
  20. METHYLPREDNISOLONE [Concomitant]
     Dosage: FOR 3 DAYS
  21. RANITIDINE [Concomitant]
     Dosage: 50MG EVERY 8 HOURS
     Route: 042
  22. ALPRAZOLAM [Concomitant]
     Dosage: 0.25MG IN THE EVENING (REDUCED FROM 0.25MG TWICE DAILY)
  23. FLUPHENAZINE [Concomitant]
     Dosage: CROSS-TAPER WITH RISPERIDONE IN 1MG INCREMENTS
     Route: 048
  24. FLUPHENAZINE [Concomitant]
     Dosage: 2MG AM AND 3MG PM
     Route: 048
  25. FLUPHENAZINE [Concomitant]
     Dosage: 1MG IN THE MORNING AND 3MG IN THE EVENING
     Route: 048
  26. FLUPHENAZINE [Concomitant]
     Route: 048
  27. ARIPIPRAZOLE [Concomitant]
  28. OLANZAPINE [Concomitant]
  29. CLONAZEPAM [Concomitant]
     Indication: TOURETTE'S DISORDER
     Dosage: 0.5MG 2-3 TIMES DAILY

REACTIONS (10)
  - BLOOD PROLACTIN INCREASED [None]
  - CONDITION AGGRAVATED [None]
  - DEPRESSION [None]
  - DRUG INTERACTION [None]
  - ELECTROCARDIOGRAM QT PROLONGED [None]
  - GALACTORRHOEA [None]
  - LETHARGY [None]
  - MUSCULOSKELETAL STIFFNESS [None]
  - SUICIDAL IDEATION [None]
  - WEIGHT INCREASED [None]
